FAERS Safety Report 8433832 (Version 6)
Quarter: 2013Q2

REPORT INFORMATION
  Report Type: Spontaneous
  Country: JP (occurrence: JP)
  Receive Date: 20120229
  Receipt Date: 20130415
  Transmission Date: 20140414
  Serious: Yes (Hospitalization, Other)
  Sender: FDA-Public Use
  Company Number: PHHY2012JP014191

PATIENT
  Sex: Female
  Weight: 30 kg

DRUGS (1)
  1. EXJADE [Suspect]
     Indication: IRON OVERLOAD
     Dosage: UNK UKN, UNK
     Route: 048
     Dates: start: 201111, end: 20120125

REACTIONS (17)
  - Status epilepticus [Unknown]
  - Fanconi syndrome acquired [Recovering/Resolving]
  - Metabolic acidosis [Recovered/Resolved]
  - Hypophosphataemia [Recovered/Resolved]
  - Hypouricaemia [Unknown]
  - Hypokalaemia [Recovered/Resolved]
  - Hypomagnesaemia [Recovered/Resolved]
  - Hyponatraemia [Recovered/Resolved]
  - Blood urea decreased [Unknown]
  - Glucose urine present [Recovered/Resolved]
  - Aminoaciduria [Recovered/Resolved]
  - Metabolic encephalopathy [Unknown]
  - Encephalopathy [Unknown]
  - Oedema [Unknown]
  - Malaise [Unknown]
  - Decreased appetite [Unknown]
  - Weight decreased [Unknown]
